FAERS Safety Report 4785313-6 (Version None)
Quarter: 2005Q3

REPORT INFORMATION
  Report Type: 
  Country: None (occurrence: None)
  Receive Date: 20050929
  Receipt Date: 20050915
  Transmission Date: 20060218
  Serious: Yes (Other)
  Sender: FDA-Public Use
  Company Number: PHBS2005SE14035

PATIENT
  Age: 58 Year
  Sex: Male

DRUGS (1)
  1. VISUDYNE [Suspect]
     Indication: HAEMANGIOMA OF RETINA

REACTIONS (5)
  - CHOROIDAL EFFUSION [None]
  - RETINAL DISORDER [None]
  - RETINAL HAEMORRHAGE [None]
  - VASCULAR OCCLUSION [None]
  - VISUAL ACUITY REDUCED [None]
